FAERS Safety Report 25112698 (Version 1)
Quarter: 2025Q1

REPORT INFORMATION
  Report Type: Spontaneous
  Country: DE (occurrence: DE)
  Receive Date: 20250324
  Receipt Date: 20250324
  Transmission Date: 20250409
  Serious: Yes (Other)
  Sender: PFIZER
  Company Number: DE-PFIZER INC-202500059926

PATIENT
  Age: 42 Year
  Sex: Female

DRUGS (3)
  1. LORLATINIB [Suspect]
     Active Substance: LORLATINIB
     Dates: start: 20240701
  2. EUTHYROX [Concomitant]
     Active Substance: LEVOTHYROXINE SODIUM
  3. LIOTHYRONINE HYDROCHLORIDE [Concomitant]
     Active Substance: LIOTHYRONINE HYDROCHLORIDE
     Indication: Thyroid hormone replacement therapy

REACTIONS (1)
  - Hypothyroidism [Unknown]
